FAERS Safety Report 8619002-4 (Version None)
Quarter: 2012Q3

REPORT INFORMATION
  Report Type: 
  Country: None (occurrence: None)
  Receive Date: 20120824
  Receipt Date: 20120820
  Transmission Date: 20120928
  Serious: Yes (Hospitalization, Other)
  Sender: FDA-Public Use
  Company Number: PHEH2008US02876

PATIENT
  Sex: Female
  Weight: 88.435 kg

DRUGS (62)
  1. CHEMOTHERAPEUTICS NOS [Concomitant]
  2. HYDROCODONE BITARTRATE [Concomitant]
     Indication: PAIN
     Dosage: 10 MG,
  3. LORAZEPAM [Concomitant]
     Indication: ANXIETY
  4. DIOVAN HCT [Concomitant]
     Indication: HYPERTENSION
  5. HYDROXYZINE [Concomitant]
     Dosage: 25 MG, BID
  6. NEURONTIN [Concomitant]
     Dosage: 300 MG, BID
  7. PREDNISONE TAB [Concomitant]
     Dates: start: 20020101
  8. CLAFORAN [Concomitant]
  9. CAPTOPRIL [Concomitant]
  10. TEGRETOL [Concomitant]
     Dosage: 200 MG, Q12H
     Route: 048
  11. AREDIA [Suspect]
  12. CELEXA [Concomitant]
     Indication: DEPRESSION
  13. CYMBALTA [Concomitant]
     Dosage: 60 MG,
  14. CITALOPRAM HYDROBROMIDE [Concomitant]
     Dosage: 40 MG, ONCE/SINGLE
  15. MELPHALAN HYDROCHLORIDE [Concomitant]
     Dosage: 340 MG,
     Dates: start: 20020101
  16. THALIDOMIDE [Concomitant]
     Dosage: 50 MG, UNK
  17. VELCADE [Concomitant]
  18. ROCEPHIN [Concomitant]
  19. PHENERGAN [Concomitant]
  20. PROPRANOLOL [Concomitant]
  21. ZOMETA [Suspect]
     Indication: NEOPLASM MALIGNANT
     Dosage: 4 MG, QMO
     Route: 042
     Dates: start: 20020924, end: 20070101
  22. CLINDAMYCIN [Concomitant]
  23. MULTI-VITAMINS [Concomitant]
  24. VITAMIN B COMPLEX CAP [Concomitant]
  25. THALIDOMIDE [Concomitant]
     Dosage: 150 MG,
     Dates: start: 20050501, end: 20060101
  26. EFFEXOR [Concomitant]
  27. ULTRAM [Concomitant]
  28. ALPHA LIPOIC ACID [Concomitant]
     Dosage: 1 DF, QD
  29. ANCEF [Concomitant]
     Dosage: 1 G,
     Dates: start: 20060522
  30. ATIVAN [Concomitant]
  31. VERSED [Concomitant]
     Dosage: 1 MG,
     Dates: start: 20060523
  32. ARANESP [Concomitant]
  33. ADRIAMYCIN PFS [Concomitant]
  34. IRON-DEXTRAN COMPLEX INJ [Concomitant]
  35. ATENOLOL [Concomitant]
  36. BISOPROLOL FUMARATE [Concomitant]
     Dosage: 1 DF, QD
     Route: 048
  37. VERAPAMIL [Concomitant]
  38. FENTANYL [Concomitant]
     Dosage: 50 UG,
     Dates: start: 20060523
  39. FUROSEMIDE [Concomitant]
  40. THALIDOMIDE [Concomitant]
     Dosage: 100 MG, UNK
  41. DECADRON [Concomitant]
     Dosage: 40 MG,
  42. ZOFRAN [Concomitant]
     Dosage: 8 MG,
     Route: 042
     Dates: start: 20060523
  43. TYLENOL [Concomitant]
     Dosage: 975 MG,
     Dates: start: 20060523
  44. PREVACID [Concomitant]
  45. KLOR-CON [Concomitant]
     Indication: BLOOD POTASSIUM
  46. GABAPENTIN [Concomitant]
  47. PROTONIX [Concomitant]
  48. LEXAPRO [Concomitant]
  49. VIOXX [Concomitant]
  50. MAGNESIUM [Concomitant]
  51. LACTULOSE [Concomitant]
  52. ZOLOFT [Concomitant]
  53. CALCIUM GLUCONATE [Concomitant]
     Dates: start: 20060523
  54. PROCRIT [Concomitant]
     Dosage: 40000 U,
     Dates: start: 20060523
  55. METHADONE HYDROCHLORIDE [Concomitant]
     Indication: PAIN
  56. AMITRIPTYLINE HYDROCHLORIDE [Concomitant]
     Indication: PAIN
  57. DEPLIN [Concomitant]
     Dosage: 7.5 MG, ONCE/SINGLE
  58. LUNESTA [Concomitant]
     Dosage: 3 MG,
  59. POTASSIUM CHLORIDE (KV/24) [Concomitant]
  60. TYLENOL W/ CODEINE NO. 3 [Concomitant]
  61. ANUCORT-HC [Concomitant]
     Dosage: 25 MG, TID
     Route: 054
  62. MIRALAX [Concomitant]

REACTIONS (96)
  - VENOUS THROMBOSIS LIMB [None]
  - COUGH [None]
  - PLEURITIC PAIN [None]
  - GASTROOESOPHAGEAL REFLUX DISEASE [None]
  - SYNCOPE [None]
  - NAUSEA [None]
  - PSYCHOMOTOR HYPERACTIVITY [None]
  - TOOTHACHE [None]
  - PARAESTHESIA [None]
  - CEREBRAL ATROPHY [None]
  - CONFUSIONAL STATE [None]
  - MULTIPLE MYELOMA [None]
  - MYELODYSPLASTIC SYNDROME [None]
  - HYPERTENSION [None]
  - OSTEOPOROSIS [None]
  - OSTEITIS [None]
  - CELLULITIS STAPHYLOCOCCAL [None]
  - VISION BLURRED [None]
  - INCREASED TENDENCY TO BRUISE [None]
  - TEMPOROMANDIBULAR JOINT SYNDROME [None]
  - DIARRHOEA [None]
  - HEADACHE [None]
  - ORAL PAIN [None]
  - ARTHRITIS [None]
  - HIATUS HERNIA [None]
  - INTERVERTEBRAL DISC DEGENERATION [None]
  - OSTEONECROSIS OF JAW [None]
  - EMOTIONAL DISTRESS [None]
  - MUSCULOSKELETAL DISCOMFORT [None]
  - NEUROPATHY PERIPHERAL [None]
  - ADRENAL INSUFFICIENCY [None]
  - GASTROINTESTINAL HAEMORRHAGE [None]
  - PULMONARY CALCIFICATION [None]
  - OEDEMA PERIPHERAL [None]
  - PYREXIA [None]
  - LUMBAR SPINAL STENOSIS [None]
  - SCAR [None]
  - BONE DISORDER [None]
  - DECUBITUS ULCER [None]
  - BRONCHITIS [None]
  - MALAISE [None]
  - CYSTITIS [None]
  - CONSTIPATION [None]
  - BONE PAIN [None]
  - DENTAL CARIES [None]
  - WEIGHT INCREASED [None]
  - HOT FLUSH [None]
  - DYSPNOEA EXERTIONAL [None]
  - ABDOMINAL DISTENSION [None]
  - UPPER RESPIRATORY TRACT INFECTION [None]
  - HAEMATOCHEZIA [None]
  - MASTICATION DISORDER [None]
  - ANXIETY [None]
  - DEPRESSION [None]
  - MONOCLONAL IMMUNOGLOBULIN PRESENT [None]
  - BLADDER CYST [None]
  - RENAL CYST [None]
  - ANAEMIA [None]
  - INFLUENZA [None]
  - LEUKOPENIA [None]
  - COMPRESSION FRACTURE [None]
  - ULCER [None]
  - FUNGAL INFECTION [None]
  - PAIN [None]
  - PAIN IN JAW [None]
  - BLOOD PRESSURE INCREASED [None]
  - INSOMNIA [None]
  - ACUTE SINUSITIS [None]
  - TREMOR [None]
  - PHARYNGITIS [None]
  - HYPOACUSIS [None]
  - HAEMORRHOIDS [None]
  - GAIT DISTURBANCE [None]
  - RECTOCELE [None]
  - CYSTOCELE [None]
  - CARDIOMEGALY [None]
  - INJURY [None]
  - FACET JOINT SYNDROME [None]
  - THROMBOSIS IN DEVICE [None]
  - OEDEMA [None]
  - DYSPHAGIA [None]
  - THROMBOCYTOPENIA [None]
  - HYPERAESTHESIA [None]
  - NIGHT SWEATS [None]
  - ASTHMA [None]
  - OBESITY [None]
  - ONYCHOMYCOSIS [None]
  - GINGIVAL PAIN [None]
  - NERVOUSNESS [None]
  - ARTHRALGIA [None]
  - AFFECTIVE DISORDER [None]
  - ABDOMINAL PAIN [None]
  - EAR CONGESTION [None]
  - INCONTINENCE [None]
  - FALL [None]
  - DIASTOLIC DYSFUNCTION [None]
